FAERS Safety Report 7666265-8 (Version None)
Quarter: 2011Q3

REPORT INFORMATION
  Report Type: 
  Country: None (occurrence: None)
  Receive Date: 20110806
  Receipt Date: 20110328
  Transmission Date: 20111222
  Serious: No
  Sender: FDA-Public Use
  Company Number: US-ABBOTT-11P-163-0714743-00

PATIENT
  Sex: Female
  Weight: 72.64 kg

DRUGS (2)
  1. NIASPAN [Suspect]
     Indication: BLOOD TRIGLYCERIDES INCREASED
     Dosage: AT BEDTIME
     Dates: end: 20110327
  2. BENADRYL [Concomitant]
     Indication: PRODUCT USED FOR UNKNOWN INDICATION

REACTIONS (4)
  - URTICARIA [None]
  - LIP SWELLING [None]
  - HYPERSENSITIVITY [None]
  - DYSPNOEA [None]
